FAERS Safety Report 5373532-X (Version None)
Quarter: 2007Q2

REPORT INFORMATION
  Report Type: 
  Country: None (occurrence: None)
  Receive Date: 20070628
  Receipt Date: 20070618
  Transmission Date: 20071010
  Serious: Yes (Hospitalization)
  Sender: FDA-Public Use
  Company Number: B0463916A

PATIENT
  Age: 72 Year

DRUGS (7)
  1. TOPOTECAN [Suspect]
     Indication: SMALL CELL LUNG CANCER STAGE UNSPECIFIED
     Dosage: 3.2MG PER DAY
     Route: 042
     Dates: start: 20061218, end: 20070321
  2. CISPLATIN [Suspect]
     Indication: SMALL CELL LUNG CANCER STAGE UNSPECIFIED
     Dosage: 80MG PER DAY
     Route: 042
     Dates: start: 20061218, end: 20070321
  3. MAGNESIUM SULFATE [Concomitant]
  4. METOCLOPRAMIDE [Concomitant]
  5. METHYLPREDNISOLONE SODIUM SUCCINATE [Concomitant]
  6. POTASSIUM ACETATE [Concomitant]
     Route: 042
  7. SODIUM [Concomitant]
     Route: 042

REACTIONS (19)
  - ANOREXIA [None]
  - BLOOD CREATININE INCREASED [None]
  - BLOOD POTASSIUM DECREASED [None]
  - BLOOD PRESSURE DECREASED [None]
  - BODY TEMPERATURE INCREASED [None]
  - CONFUSIONAL STATE [None]
  - DEHYDRATION [None]
  - DIZZINESS [None]
  - DYSPHAGIA [None]
  - FATIGUE [None]
  - FUNGAL INFECTION [None]
  - HAEMOGLOBIN DECREASED [None]
  - HEADACHE [None]
  - HYPOMAGNESAEMIA [None]
  - ILL-DEFINED DISORDER [None]
  - MALAISE [None]
  - NAUSEA [None]
  - ORAL FUNGAL INFECTION [None]
  - WHITE BLOOD CELL COUNT DECREASED [None]
